FAERS Safety Report 5610269-3 (Version None)
Quarter: 2008Q1

REPORT INFORMATION
  Report Type: 
  Country: None (occurrence: None)
  Receive Date: 20080111
  Receipt Date: 20070809
  Transmission Date: 20080703
  Serious: Yes (Hospitalization, Other)
  Sender: FDA-Public Use
  Company Number: HQWYE523410AUG07

PATIENT
  Sex: Female

DRUGS (5)
  1. PREMPRO [Suspect]
  2. ACTIVELLA [Suspect]
  3. CYCRIN [Suspect]
  4. ESTRACE [Suspect]
  5. FEMHRT [Suspect]

REACTIONS (1)
  - BREAST CANCER [None]
